FAERS Safety Report 18050238 (Version 2)
Quarter: 2021Q2

REPORT INFORMATION
  Report Type: Spontaneous
  Country: US (occurrence: US)
  Receive Date: 20200721
  Receipt Date: 20210629
  Transmission Date: 20210717
  Serious: Yes (Other)
  Sender: FDA-Public Use
  Company Number: US-TEVA-2020-US-1801625

PATIENT
  Age: 64 Year
  Sex: Male

DRUGS (2)
  1. WARFARIN SODIUM. [Suspect]
     Active Substance: WARFARIN SODIUM
     Dosage: YEARS AGO
     Route: 065
  2. WARFARIN SODIUM. [Suspect]
     Active Substance: WARFARIN SODIUM
     Route: 065
     Dates: start: 20200710

REACTIONS (6)
  - Product substitution issue [Unknown]
  - Memory impairment [Unknown]
  - International normalised ratio increased [Unknown]
  - Adverse event [Unknown]
  - Drug intolerance [Unknown]
  - Confusional state [Unknown]

NARRATIVE: CASE EVENT DATE: 202007
